FAERS Safety Report 23713929 (Version 1)
Quarter: 2024Q2

REPORT INFORMATION
  Report Type: Spontaneous
  Country: CN (occurrence: CN)
  Receive Date: 20240405
  Receipt Date: 20240405
  Transmission Date: 20240715
  Serious: Yes (Other)
  Sender: FDA-Public Use
  Company Number: CN-Merck Healthcare KGaA-2024017697

PATIENT
  Age: 71 Year
  Sex: Male
  Weight: 70 kg

DRUGS (3)
  1. ERBITUX [Suspect]
     Active Substance: CETUXIMAB
     Indication: Tongue neoplasm malignant stage unspecified
     Dosage: 500 MG, DAILY
     Route: 041
     Dates: start: 20240305
  2. PACLITAXEL [Suspect]
     Active Substance: PACLITAXEL
     Indication: Tongue neoplasm malignant stage unspecified
     Dosage: 280 MG, DAILY
     Route: 041
     Dates: start: 20240305
  3. NEDAPLATIN [Suspect]
     Active Substance: NEDAPLATIN
     Indication: Tongue neoplasm malignant stage unspecified
     Dosage: 110 MG, DAILY
     Route: 041
     Dates: start: 20240305

REACTIONS (1)
  - Neutrophil count decreased [Recovering/Resolving]

NARRATIVE: CASE EVENT DATE: 20240314
